FAERS Safety Report 20263744 (Version 1)
Quarter: 2021Q4

REPORT INFORMATION
  Report Type: Spontaneous
  Country: DE (occurrence: DE)
  Receive Date: 20211231
  Receipt Date: 20211231
  Transmission Date: 20220303
  Serious: Yes (Hospitalization)
  Sender: FDA-Public Use
  Company Number: DE-ADRED-05770-01

PATIENT
  Age: 35 Year
  Sex: Female
  Weight: 72 kg

DRUGS (2)
  1. IBUPROFEN [Suspect]
     Active Substance: IBUPROFEN
     Route: 048
  2. ACETAMINOPHEN\CAFFEINE [Suspect]
     Active Substance: ACETAMINOPHEN\CAFFEINE
     Route: 048

REACTIONS (6)
  - Photophobia [Unknown]
  - Migraine [Unknown]
  - Nausea [Unknown]
  - Headache [Unknown]
  - Nausea [Unknown]
  - Headache [Unknown]
